FAERS Safety Report 9646491 (Version 2)
Quarter: 2013Q4

REPORT INFORMATION
  Report Type: Spontaneous
  Country: JP (occurrence: JP)
  Receive Date: 20131025
  Receipt Date: 20131025
  Transmission Date: 20140711
  Serious: Yes (Hospitalization)
  Sender: FDA-Public Use
  Company Number: JP-MERCK-1309JPN009925

PATIENT
  Age: 78 Year
  Sex: Male

DRUGS (9)
  1. GLACTIV [Suspect]
     Indication: TYPE 2 DIABETES MELLITUS
     Dosage: 50 MG, QD
     Route: 048
     Dates: start: 20130319, end: 20130614
  2. ACTOS [Concomitant]
     Dosage: UNK
     Dates: start: 20100713, end: 20130613
  3. ACTOS [Concomitant]
     Dosage: UNK
     Dates: start: 20130614, end: 20130826
  4. PLAVIX [Concomitant]
     Dosage: UNK
     Dates: start: 20090605
  5. PARIET [Concomitant]
     Dosage: UNK
     Dates: start: 20110407
  6. DIOVAN [Concomitant]
     Dosage: UNK
     Dates: start: 20070919
  7. MEVALOTIN [Concomitant]
     Dosage: UNK
     Dates: start: 20110407
  8. ADALAT CR [Concomitant]
     Dosage: UNK
     Dates: start: 20060125
  9. BETANIS [Concomitant]
     Dosage: UNK
     Dates: start: 20130419

REACTIONS (1)
  - Autoimmune pancreatitis [Recovered/Resolved]
